FAERS Safety Report 19449051 (Version 2)
Quarter: 2021Q4

REPORT INFORMATION
  Report Type: Spontaneous
  Country: FR (occurrence: FR)
  Receive Date: 20210622
  Receipt Date: 20211123
  Transmission Date: 20220303
  Serious: Yes (Other)
  Sender: FDA-Public Use
  Company Number: FR-SA-2020SA377995

PATIENT
  Age: 58 Year
  Sex: Female
  Weight: 116.5 kg

DRUGS (7)
  1. ALPRAZOLAM [Interacting]
     Active Substance: ALPRAZOLAM
     Indication: Anxiety
     Dosage: 1.5 MILLIGRAM, QD
     Route: 048
     Dates: end: 20201104
  2. VALGANCICLOVIR HYDROCHLORIDE [Interacting]
     Active Substance: VALGANCICLOVIR HYDROCHLORIDE
     Indication: Antiviral prophylaxis
     Dosage: 900 MILLIGRAM, QD
     Route: 048
     Dates: start: 20201106
  3. KETAMINE [Interacting]
     Active Substance: KETAMINE
     Indication: Analgesic intervention supportive therapy
     Dosage: 50 MILLIGRAM, QD
     Route: 041
     Dates: start: 20201105, end: 20201109
  4. NEFOPAM HYDROCHLORIDE [Interacting]
     Active Substance: NEFOPAM HYDROCHLORIDE
     Indication: Analgesic intervention supportive therapy
     Dosage: 80 MILLIGRAM, QD
     Route: 041
     Dates: start: 20201105, end: 20201108
  5. TACROLIMUS [Suspect]
     Active Substance: TACROLIMUS
     Indication: Prophylaxis against transplant rejection
     Dosage: 2 MILLIGRAM, QD
     Route: 048
     Dates: start: 20201106
  6. PIPERACILLIN SODIUM [Interacting]
     Active Substance: PIPERACILLIN SODIUM
     Indication: Antibiotic prophylaxis
     Dosage: 16 MILLIGRAM, QD
     Route: 041
     Dates: start: 20201105, end: 20201108
  7. TRAMADOL HYDROCHLORIDE [Interacting]
     Active Substance: TRAMADOL HYDROCHLORIDE
     Indication: Analgesic intervention supportive therapy
     Dosage: UNK
     Route: 041
     Dates: start: 20201105, end: 20201108

REACTIONS (2)
  - Tonic clonic movements [Recovered/Resolved]
  - Drug interaction [Unknown]

NARRATIVE: CASE EVENT DATE: 20201108
